FAERS Safety Report 19319498 (Version 1)
Quarter: 2021Q2

REPORT INFORMATION
  Report Type: Spontaneous
  Country: US (occurrence: US)
  Receive Date: 20210527
  Receipt Date: 20210527
  Transmission Date: 20210717
  Serious: Yes (Death)
  Sender: FDA-Public Use
  Company Number: None

PATIENT
  Age: 69 Year
  Sex: Female

DRUGS (2)
  1. TABRECTA [Suspect]
     Active Substance: CAPMATINIB
     Indication: LUNG NEOPLASM MALIGNANT
     Route: 048
     Dates: start: 20210505, end: 20210510
  2. TABRECTA [Suspect]
     Active Substance: CAPMATINIB
     Indication: BRONCHIAL CARCINOMA
     Route: 048
     Dates: start: 20210505, end: 20210510

REACTIONS (1)
  - Death [None]

NARRATIVE: CASE EVENT DATE: 20210510
